FAERS Safety Report 13526679 (Version 7)
Quarter: 2021Q2

REPORT INFORMATION
  Report Type: Spontaneous
  Country: US (occurrence: US)
  Receive Date: 20170509
  Receipt Date: 20210515
  Transmission Date: 20210716
  Serious: Yes (Congenital Anomaly, Other)
  Sender: FDA-Public Use
  Company Number: PHEH2017US013531

PATIENT
  Sex: Male

DRUGS (1)
  1. ZOFRAN [Suspect]
     Active Substance: ONDANSETRON HYDROCHLORIDE
     Indication: FOETAL EXPOSURE DURING PREGNANCY
     Dosage: MOTHER^S DOSE: 1 DF, UNK
     Route: 064

REACTIONS (28)
  - Cleft palate [Unknown]
  - Ear pain [Unknown]
  - Regurgitation [Unknown]
  - Eye swelling [Unknown]
  - Jaundice neonatal [Unknown]
  - Middle ear effusion [Unknown]
  - Eczema [Unknown]
  - Snoring [Unknown]
  - Contusion [Unknown]
  - Pectus carinatum [Unknown]
  - Otitis media chronic [Unknown]
  - Asthma [Unknown]
  - Oppositional defiant disorder [Unknown]
  - Cleft lip [Unknown]
  - Foetal exposure during pregnancy [Unknown]
  - Attention deficit hyperactivity disorder [Unknown]
  - Dermatitis contact [Unknown]
  - Pectus excavatum [Unknown]
  - Velopharyngeal incompetence [Unknown]
  - Selective eating disorder [Unknown]
  - Chest pain [Unknown]
  - Fistula [Unknown]
  - Scar pain [Unknown]
  - Malocclusion [Unknown]
  - Headache [Unknown]
  - Breath odour [Unknown]
  - Eye pain [Unknown]
  - Pain in extremity [Unknown]
